FAERS Safety Report 5739465-1 (Version None)
Quarter: 2008Q2

REPORT INFORMATION
  Report Type: 
  Country: None (occurrence: None)
  Receive Date: 20080513
  Receipt Date: 20080502
  Transmission Date: 20081010
  Serious: Yes (Life-Threatening, Hospitalization)
  Sender: FDA-Public Use
  Company Number: 2008SP008250

PATIENT
  Age: 43 Year
  Sex: Female

DRUGS (4)
  1. VIRAFERONPEG [Suspect]
     Indication: HEPATITIS C VIRUS
     Dates: start: 20060607, end: 20061109
  2. RIBAVIRIN [Suspect]
     Indication: HEPATITIS C VIRUS
     Dates: start: 20060607, end: 20061109
  3. ZOPICLONE [Concomitant]
  4. QUETIAPINE FUMARATE [Concomitant]

REACTIONS (1)
  - MULTIPLE DRUG OVERDOSE [None]
